FAERS Safety Report 17814866 (Version 1)
Quarter: 2020Q2

REPORT INFORMATION
  Report Type: Spontaneous
  Country: US (occurrence: US)
  Receive Date: 20200522
  Receipt Date: 20200522
  Transmission Date: 20200714
  Serious: No
  Sender: FDA-Public Use
  Company Number: US-TEVA-2020-US-1238000

PATIENT
  Sex: Female

DRUGS (1)
  1. AMPHETAMINE W/DEXTROAMPHETAMINE [Suspect]
     Active Substance: AMPHETAMINE SULFATE\DEXTROAMPHETAMINE
     Indication: ATTENTION DEFICIT HYPERACTIVITY DISORDER
     Dosage: 20 MG; 2 TABLETS PER DAY
     Route: 065
     Dates: start: 202004

REACTIONS (5)
  - Palpitations [Unknown]
  - Drug ineffective [Unknown]
  - Feeling abnormal [Unknown]
  - Dizziness [Unknown]
  - Hyperhidrosis [Unknown]
